FAERS Safety Report 25323820 (Version 1)
Quarter: 2025Q2

REPORT INFORMATION
  Report Type: Spontaneous
  Country: US (occurrence: US)
  Receive Date: 20250516
  Receipt Date: 20250516
  Transmission Date: 20250716
  Serious: No
  Sender: BLUEPRINT MEDICINES
  Company Number: US-Blueprint Medicines Corporation-2025-AER-01016

PATIENT
  Age: 67 Year
  Sex: Female

DRUGS (7)
  1. AYVAKIT [Suspect]
     Active Substance: AVAPRITINIB
     Indication: Gastrointestinal stromal tumour
     Route: 065
     Dates: start: 20250417
  2. CVS Senna [Concomitant]
     Indication: Product used for unknown indication
     Route: 065
  3. MIRALAX [Concomitant]
     Active Substance: POLYETHYLENE GLYCOL 3350
     Indication: Product used for unknown indication
     Route: 065
  4. ACETAMINOPHEN\HYDROCODONE [Concomitant]
     Active Substance: ACETAMINOPHEN\HYDROCODONE
     Indication: Product used for unknown indication
     Route: 065
  5. IMATINIB [Concomitant]
     Active Substance: IMATINIB
     Indication: Product used for unknown indication
     Route: 065
  6. SUTENT [Concomitant]
     Active Substance: SUNITINIB MALATE
     Indication: Product used for unknown indication
     Route: 065
  7. Triamcinolone Acetonide External [Concomitant]
     Indication: Product used for unknown indication
     Route: 065

REACTIONS (3)
  - Eye swelling [Recovering/Resolving]
  - Swelling face [Recovering/Resolving]
  - Abdominal pain upper [Recovering/Resolving]
